FAERS Safety Report 5799345-2 (Version None)
Quarter: 2008Q3

REPORT INFORMATION
  Report Type: 
  Country: None (occurrence: None)
  Receive Date: 20080702
  Receipt Date: 20080623
  Transmission Date: 20090109
  Serious: Yes (Other)
  Sender: FDA-Public Use
  Company Number: JP-PFIZER INC-2008053347

PATIENT
  Age: 17 Year
  Sex: Male

DRUGS (2)
  1. ZYVOX [Suspect]
     Dosage: DAILY DOSE:1200MG
     Route: 042
  2. DEPAKENE [Concomitant]
     Route: 048

REACTIONS (3)
  - ANTICONVULSANT DRUG LEVEL DECREASED [None]
  - CONVULSION [None]
  - DRUG INTERACTION [None]
